FAERS Safety Report 4310500-0 (Version None)
Quarter: 2004Q1

REPORT INFORMATION
  Report Type: 
  Country: None (occurrence: None)
  Receive Date: 20040303
  Receipt Date: 20010626
  Transmission Date: 20041129
  Serious: Yes (Death, Life-Threatening, Hospitalization, Disabling, Other)
  Sender: FDA-Public Use
  Company Number: US-GLAXOSMITHKLINE-A0152584A

PATIENT
  Age: 33 Year
  Sex: Female
  Weight: 97.7 kg

DRUGS (5)
  1. LAMICTAL [Suspect]
     Indication: EPILEPSY
     Dosage: 25MG IN THE MORNING
     Route: 048
     Dates: start: 20010501, end: 20010527
  2. KEPPRA [Concomitant]
     Indication: EPILEPSY
     Dosage: 750MG TWICE PER DAY
     Route: 048
     Dates: end: 20010529
  3. CELEXA [Concomitant]
     Indication: DEPRESSION
     Dosage: 20MG PER DAY
  4. SUDAFED S.A. [Concomitant]
  5. IBUPROFEN [Concomitant]

REACTIONS (65)
  - ABDOMINAL PAIN [None]
  - ACTIVATED PARTIAL THROMBOPLASTIN TIME PROLONGED [None]
  - ACUTE RESPIRATORY DISTRESS SYNDROME [None]
  - ATELECTASIS [None]
  - BACK PAIN [None]
  - BRADYCARDIA [None]
  - CANDIDIASIS [None]
  - CARDIAC ARREST [None]
  - CHEST DISCOMFORT [None]
  - COAGULOPATHY [None]
  - CONSTIPATION [None]
  - CONVULSION [None]
  - COUGH [None]
  - DEHYDRATION [None]
  - DIARRHOEA [None]
  - DISSEMINATED INTRAVASCULAR COAGULATION [None]
  - DRY MOUTH [None]
  - DYSPNOEA [None]
  - EPISTAXIS [None]
  - ERYTHEMA MULTIFORME [None]
  - ESCHERICHIA SEPSIS [None]
  - FLATULENCE [None]
  - GASTROINTESTINAL DISORDER [None]
  - GENERAL PHYSICAL HEALTH DETERIORATION [None]
  - GLUCOSE URINE PRESENT [None]
  - HAEMATEMESIS [None]
  - HAEMATURIA [None]
  - HAEMOPTYSIS [None]
  - HAEMORRHAGE [None]
  - HEADACHE [None]
  - HEPATIC STEATOSIS [None]
  - HEPATITIS [None]
  - HOARSENESS [None]
  - HYPERAEMIA [None]
  - HYPERSENSITIVITY [None]
  - HYPOTENSION [None]
  - INFLUENZA LIKE ILLNESS [None]
  - JOINT SWELLING [None]
  - KETONURIA [None]
  - LIVER FUNCTION TEST ABNORMAL [None]
  - LYMPHADENITIS [None]
  - LYMPHADENOPATHY [None]
  - METABOLIC ACIDOSIS [None]
  - MULTI-ORGAN FAILURE [None]
  - OXYGEN SATURATION DECREASED [None]
  - PERICARDITIS [None]
  - PHARYNGITIS [None]
  - PHARYNGOLARYNGEAL PAIN [None]
  - PROTEINURIA [None]
  - PULMONARY OEDEMA [None]
  - PYREXIA [None]
  - RASH [None]
  - RENAL FAILURE [None]
  - RESPIRATORY FAILURE [None]
  - RETCHING [None]
  - RHABDOMYOLYSIS [None]
  - SEPSIS [None]
  - SEPTIC SHOCK [None]
  - SINUS TACHYCARDIA [None]
  - STATUS EPILEPTICUS [None]
  - STEVENS-JOHNSON SYNDROME [None]
  - SYSTEMIC LUPUS ERYTHEMATOSUS [None]
  - TACHYPNOEA [None]
  - VASCULITIS [None]
  - VOMITING [None]
